FAERS Safety Report 6985834-1 (Version None)
Quarter: 2010Q3

REPORT INFORMATION
  Report Type: 
  Country: None (occurrence: None)
  Receive Date: 20100915
  Receipt Date: 20100910
  Transmission Date: 20110219
  Serious: Yes (Other)
  Sender: FDA-Public Use
  Company Number: US-BAYER-201039240GPV

PATIENT
  Age: 70 Year
  Sex: Male

DRUGS (5)
  1. ASPIRIN [Suspect]
     Indication: ANGINA UNSTABLE
  2. CLOPIDOGREL [Interacting]
     Indication: ANGINA UNSTABLE
     Dosage: DURING PCI
     Route: 048
  3. CLOPIDOGREL [Interacting]
  4. HEPARIN [Concomitant]
     Indication: PRODUCT USED FOR UNKNOWN INDICATION
     Dosage: DURING PCI
     Route: 013
  5. NITROGLYCERIN [Concomitant]
     Indication: PRODUCT USED FOR UNKNOWN INDICATION
     Dosage: DURING PCI
     Route: 022

REACTIONS (1)
  - MELAENA [None]
